FAERS Safety Report 12950677 (Version 1)
Quarter: 2016Q4

REPORT INFORMATION
  Report Type: Spontaneous
  Country: US (occurrence: US)
  Receive Date: 20161117
  Receipt Date: 20161117
  Transmission Date: 20170207
  Serious: Yes (Life-Threatening)
  Sender: FDA-Public Use
  Company Number: None

PATIENT
  Age: 78 Year
  Sex: Female

DRUGS (1)
  1. BREO ELLIPTA [Suspect]
     Active Substance: FLUTICASONE FUROATE\VILANTEROL TRIFENATATE

REACTIONS (10)
  - Dizziness [None]
  - Sinusitis [None]
  - Gait disturbance [None]
  - Bronchitis [None]
  - Cough [None]
  - Dyspnoea [None]
  - Respiratory tract infection [None]
  - Dysphonia [None]
  - Oral pain [None]
  - Oropharyngeal pain [None]

NARRATIVE: CASE EVENT DATE: 20161013
